FAERS Safety Report 19653433 (Version 1)
Quarter: 2021Q3

REPORT INFORMATION
  Report Type: Spontaneous
  Country: NL (occurrence: NL)
  Receive Date: 20210803
  Receipt Date: 20210803
  Transmission Date: 20211014
  Serious: Yes (Hospitalization)
  Sender: FDA-Public Use
  Company Number: NL-ASTRAZENECA-2021A626910

PATIENT
  Age: 78 Year
  Sex: Female
  Weight: 70 kg

DRUGS (2)
  1. DENOSUMAB INJVLST [Suspect]
     Active Substance: DENOSUMAB
     Dosage: 1X PER 4 WEEKS
     Route: 065
     Dates: start: 2019
  2. FASLODEX [Suspect]
     Active Substance: FULVESTRANT
     Dosage: 1X PER 4 WEEKS 1 PIECE
     Route: 065
     Dates: start: 2019

REACTIONS (1)
  - Pancreatitis relapsing [Not Recovered/Not Resolved]

NARRATIVE: CASE EVENT DATE: 20210704
